FAERS Safety Report 9204096 (Version 1)
Quarter: 2013Q2

REPORT INFORMATION
  Report Type: Spontaneous
  Country: US (occurrence: US)
  Receive Date: 20130402
  Receipt Date: 20130402
  Transmission Date: 20140414
  Serious: Yes (Other)
  Sender: FDA-Public Use
  Company Number: US-PFIZER INC-2013099869

PATIENT
  Age: 80 Year
  Sex: Female
  Weight: 74.83 kg

DRUGS (4)
  1. CENTRUM SILVER [Suspect]
     Dosage: UNK (HALF A TABLET), 2X/DAY
     Dates: end: 201208
  2. NITROGLYCERIN [Suspect]
     Dosage: UNK
  3. BENICAR [Concomitant]
     Indication: BLOOD PRESSURE ABNORMAL
     Dosage: 20 MG, 2X/DAY
  4. SPIRIVA [Concomitant]
     Indication: CHRONIC OBSTRUCTIVE PULMONARY DISEASE
     Dosage: 1 DF, 1X/DAY

REACTIONS (4)
  - Apparent death [Unknown]
  - Drug hypersensitivity [Unknown]
  - Foreign body [Unknown]
  - Vocal cord disorder [Unknown]
